FAERS Safety Report 4360680-6 (Version None)
Quarter: 2004Q2

REPORT INFORMATION
  Report Type: 
  Country: None (occurrence: None)
  Receive Date: 20040519
  Receipt Date: 20040519
  Transmission Date: 20050107
  Serious: Yes (Life-Threatening, Hospitalization)
  Sender: FDA-Public Use
  Company Number: None

PATIENT
  Age: 80 Year
  Sex: Male

DRUGS (1)
  1. DOBUTAMINE GTT [Suspect]
     Indication: CARDIAC OUTPUT INCREASED
     Dosage: IV
     Dates: start: 20040220, end: 20040223

REACTIONS (3)
  - EXTRASYSTOLES [None]
  - MYOCARDIAL INFARCTION [None]
  - VENTRICULAR TACHYCARDIA [None]
